FAERS Safety Report 21954924 (Version 1)
Quarter: 2023Q1

REPORT INFORMATION
  Report Type: Spontaneous
  Country: TW (occurrence: None)
  Receive Date: 20230206
  Receipt Date: 20230206
  Transmission Date: 20230417
  Serious: Yes (Death)
  Sender: FDA-Public Use
  Company Number: TW-ROCHE-3279042

PATIENT
  Age: 71 Year
  Sex: Male

DRUGS (3)
  1. MABTHERA [Suspect]
     Active Substance: RITUXIMAB
     Indication: Viral infection
     Dosage: 700MG*4
     Route: 041
     Dates: start: 20210721, end: 20211104
  2. CELEBREX [Concomitant]
     Active Substance: CELECOXIB
     Indication: Viral infection
     Route: 048
     Dates: start: 20210121, end: 20230119
  3. METHOTREXATE [Concomitant]
     Active Substance: METHOTREXATE
     Indication: Viral infection
     Route: 048
     Dates: start: 20100811, end: 20230119

REACTIONS (1)
  - Death [Fatal]

NARRATIVE: CASE EVENT DATE: 20230119
